FAERS Safety Report 8233992-3 (Version None)
Quarter: 2012Q1

REPORT INFORMATION
  Report Type: 
  Country: None (occurrence: None)
  Receive Date: 20120326
  Receipt Date: 20120316
  Transmission Date: 20120608
  Serious: Yes (Hospitalization)
  Sender: FDA-Public Use
  Company Number: JP-NAPPMUNDI-MAG-2012-0002078

PATIENT
  Sex: Male

DRUGS (3)
  1. BUPRENORPHINE [Suspect]
     Dosage: 20 MCG, Q1H
     Route: 062
     Dates: start: 20111201, end: 20120301
  2. FENTANYL [Concomitant]
     Indication: PROCEDURAL PAIN
     Dosage: UNK
     Dates: start: 20120302
  3. BUPRENORPHINE [Suspect]
     Indication: PAIN
     Dosage: 10 MCG, Q1H
     Route: 062
     Dates: start: 20120302

REACTIONS (1)
  - KNEE ARTHROPLASTY [None]
